FAERS Safety Report 18228388 (Version 1)
Quarter: 2020Q3

REPORT INFORMATION
  Report Type: Spontaneous
  Country: FR (occurrence: FR)
  Receive Date: 20200903
  Receipt Date: 20200903
  Transmission Date: 20201103
  Serious: Yes (Other)
  Sender: FDA-Public Use
  Company Number: FR-TEVA-2020-FR-1821966

PATIENT
  Age: 60 Year
  Sex: Male
  Weight: 68 kg

DRUGS (14)
  1. ZAMUDOL L.P. 100 MG, GELULE A LIBERATION PROLONGEE [Suspect]
     Active Substance: TRAMADOL HYDROCHLORIDE
     Indication: PAIN
     Dosage: 2 DOSAGE FORMS
     Route: 048
     Dates: start: 20200706, end: 20200713
  2. ANAFRANIL [Suspect]
     Active Substance: CLOMIPRAMINE HYDROCHLORIDE
     Indication: ADJUSTMENT DISORDER WITH DEPRESSED MOOD
     Dosage: 50 MG
     Route: 042
     Dates: start: 20200615, end: 20200717
  3. PREGABALINE [Concomitant]
     Active Substance: PREGABALIN
     Dosage: 6 DOSAGE FORMS
     Route: 048
  4. TIENAM [Suspect]
     Active Substance: CILASTATIN SODIUM\IMIPENEM
     Indication: OSTEITIS
     Dosage: 1 GRAM
     Route: 042
     Dates: start: 20200610, end: 20200717
  5. TRIFLUCAN [Concomitant]
     Active Substance: FLUCONAZOLE
     Dosage: 400 MG
     Route: 048
     Dates: start: 20200610
  6. LEVOFLOXACINE [Suspect]
     Active Substance: LEVOFLOXACIN
     Indication: OSTEITIS
     Dosage: 500 MG
     Route: 042
     Dates: start: 20200610, end: 20200717
  7. OROZAMUDOL 50 MG, COMPRIME ORODISPERSIBLE [Suspect]
     Active Substance: TRAMADOL HYDROCHLORIDE
     Indication: PAIN
     Dosage: 1 DOSAGE FORMS
     Route: 048
     Dates: start: 20200707, end: 20200713
  8. LOVENOX [Concomitant]
     Active Substance: ENOXAPARIN SODIUM
     Dosage: 4000 IU
     Route: 058
  9. ACUPAN [Concomitant]
     Active Substance: NEFOPAM HYDROCHLORIDE
     Dosage: 60 MG
     Route: 048
     Dates: start: 20200713
  10. VANCOMYCINE [Suspect]
     Active Substance: VANCOMYCIN
     Indication: BACTERIAL INFECTION
     Dosage: 2 GRAM
     Route: 041
     Dates: start: 20200626, end: 20200717
  11. PARACETAMOL [Concomitant]
     Active Substance: ACETAMINOPHEN
     Dosage: 3 GRAM
     Route: 042
  12. CHOLECALCIFEROL [Concomitant]
     Active Substance: CHOLECALCIFEROL
     Dosage: 1 DOSAGE FORMS
  13. LANSOPRAZOLE. [Concomitant]
     Active Substance: LANSOPRAZOLE
     Dosage: 30 MG
     Route: 048
     Dates: start: 20200609
  14. MOVICOL [Concomitant]
     Active Substance: POLYETHYLENE GLYCOL 3350\POTASSIUM CHLORIDE\SODIUM BICARBONATE\SODIUM CHLORIDE
     Dosage: 1 TO 2 SHAPES
     Route: 048

REACTIONS (1)
  - Confusional state [Recovered/Resolved]

NARRATIVE: CASE EVENT DATE: 20200711
